FAERS Safety Report 25954804 (Version 1)
Quarter: 2025Q4

REPORT INFORMATION
  Report Type: Spontaneous
  Country: US (occurrence: US)
  Receive Date: 20251024
  Receipt Date: 20251024
  Transmission Date: 20260117
  Serious: No
  Sender: ROCHE
  Company Number: US-ROCHE-10000415549

PATIENT
  Sex: Male

DRUGS (1)
  1. XOLAIR [Suspect]
     Active Substance: OMALIZUMAB
     Indication: Urticaria
     Dosage: 300 MG/ 2ML
     Route: 058
     Dates: start: 202508

REACTIONS (4)
  - Device breakage [Unknown]
  - Product dose omission issue [Unknown]
  - Device defective [Unknown]
  - No adverse event [Unknown]
